FAERS Safety Report 8135419-9 (Version None)
Quarter: 2012Q1

REPORT INFORMATION
  Report Type: 
  Country: None (occurrence: None)
  Receive Date: 20120214
  Receipt Date: 20120207
  Transmission Date: 20120608
  Serious: Yes (Other)
  Sender: FDA-Public Use
  Company Number: US-ROCHE-794205

PATIENT
  Sex: Female
  Weight: 59.02 kg

DRUGS (1)
  1. ACCUTANE [Suspect]
     Indication: ACNE CYSTIC
     Route: 065
     Dates: start: 19890101, end: 19940101

REACTIONS (3)
  - COLITIS ULCERATIVE [None]
  - INFLAMMATORY BOWEL DISEASE [None]
  - IRRITABLE BOWEL SYNDROME [None]
